FAERS Safety Report 19306795 (Version 6)
Quarter: 2022Q1

REPORT INFORMATION
  Report Type: Report from Study
  Country: US (occurrence: US)
  Receive Date: 20210525
  Receipt Date: 20220210
  Transmission Date: 20220424
  Serious: No
  Sender: FDA-Public Use
  Company Number: NVSC2021US117030

PATIENT
  Sex: Male

DRUGS (1)
  1. COSENTYX [Suspect]
     Active Substance: SECUKINUMAB
     Indication: Psoriatic arthropathy
     Dosage: 300 MG, QMO
     Route: 058

REACTIONS (6)
  - Arthralgia [Unknown]
  - Pain [Unknown]
  - Muscle spasms [Unknown]
  - Condition aggravated [Unknown]
  - Hypoaesthesia [Unknown]
  - Drug ineffective [Not Recovered/Not Resolved]
